FAERS Safety Report 7967611-8 (Version None)
Quarter: 2011Q4

REPORT INFORMATION
  Report Type: 
  Country: None (occurrence: None)
  Receive Date: 20111207
  Receipt Date: 20111121
  Transmission Date: 20120403
  Serious: Yes (Hospitalization)
  Sender: FDA-Public Use
  Company Number: 2011AP002792

PATIENT
  Age: 54 Year
  Sex: Male

DRUGS (10)
  1. SERTRALINE HYDROCHLORIDE [Suspect]
     Indication: PRODUCT USED FOR UNKNOWN INDICATION
  2. COTRIM [Concomitant]
  3. IMIPENEM [Concomitant]
  4. ESOMEPRAZOLE SODIUM [Concomitant]
  5. DOCUSATE [Concomitant]
  6. CILASTATIN [Concomitant]
  7. LINEZOLID [Suspect]
     Indication: CANDIDIASIS
  8. TACROLIMUS [Suspect]
     Indication: IMMUNOSUPPRESSION
  9. METOPROLOL TARTRATE [Concomitant]
  10. CASPOFUNGIN ACETATE [Concomitant]

REACTIONS (21)
  - RESTLESSNESS [None]
  - SEROTONIN SYNDROME [None]
  - LOCALISED INTRAABDOMINAL FLUID COLLECTION [None]
  - BILE DUCT STENOSIS [None]
  - TREMOR [None]
  - BLOOD BILIRUBIN INCREASED [None]
  - DRUG INTERACTION [None]
  - ENTEROCOCCAL INFECTION [None]
  - BALANCE DISORDER [None]
  - SENSORY LOSS [None]
  - MENTAL STATUS CHANGES [None]
  - MUSCLE CONTRACTIONS INVOLUNTARY [None]
  - FALL [None]
  - HALLUCINATION, VISUAL [None]
  - AGITATION [None]
  - CANDIDIASIS [None]
  - CONFUSIONAL STATE [None]
  - TOXICITY TO VARIOUS AGENTS [None]
  - POST PROCEDURAL BILE LEAK [None]
  - ENTEROBACTER INFECTION [None]
  - AGGRESSION [None]
